FAERS Safety Report 11236610 (Version 1)
Quarter: 2015Q3

REPORT INFORMATION
  Report Type: Spontaneous
  Country: US (occurrence: US)
  Receive Date: 20150702
  Receipt Date: 20150702
  Transmission Date: 20151125
  Serious: No
  Sender: FDA-Public Use
  Company Number: US-TAKEDA-2015TUS006613

PATIENT
  Sex: Female
  Weight: 94.33 kg

DRUGS (6)
  1. FLAGYL [Concomitant]
     Active Substance: METRONIDAZOLE\METRONIDAZOLE HYDROCHLORIDE
     Indication: BACTERIAL VAGINOSIS
     Dosage: 250 MG, 3 TIMES PER WEEK
     Route: 048
     Dates: start: 201411
  2. CONTRAVE [Suspect]
     Active Substance: BUPROPION HYDROCHLORIDE\NALTREXONE HYDROCHLORIDE
     Dosage: BID
     Route: 048
  3. CONTRAVE [Suspect]
     Active Substance: BUPROPION HYDROCHLORIDE\NALTREXONE HYDROCHLORIDE
     Indication: OVERWEIGHT
     Dosage: QD
     Route: 048
     Dates: start: 20150413
  4. CONTRAVE [Suspect]
     Active Substance: BUPROPION HYDROCHLORIDE\NALTREXONE HYDROCHLORIDE
     Dosage: 2 TABLETS IN THE MORNING AND ONE TABLET IN THE EVENING
     Route: 048
     Dates: end: 20150512
  5. NORVASC [Concomitant]
     Active Substance: AMLODIPINE BESYLATE
     Indication: HYPERTENSION
     Dosage: 10 MG, QD
     Route: 048
     Dates: start: 201505
  6. HYZAAR [Concomitant]
     Active Substance: HYDROCHLOROTHIAZIDE\LOSARTAN POTASSIUM
     Indication: HYPERTENSION
     Dosage: 100/25 MG
     Route: 048
     Dates: start: 201410

REACTIONS (2)
  - Blood pressure increased [Recovered/Resolved]
  - Chest pain [Recovered/Resolved]
